FAERS Safety Report 23345297 (Version 1)
Quarter: 2023Q4

REPORT INFORMATION
  Report Type: Report from Study
  Country: US (occurrence: US)
  Receive Date: 20231228
  Receipt Date: 20231228
  Transmission Date: 20240110
  Serious: No
  Sender: FDA-Public Use
  Company Number: US-ACADIA PHARMACEUTICALS INC.-ACA-2023-PIM-005636

PATIENT
  Age: 73 Year
  Sex: Male

DRUGS (15)
  1. NUPLAZID [Suspect]
     Active Substance: PIMAVANSERIN TARTRATE
     Indication: Parkinson^s disease psychosis
     Dosage: 34 MILLIGRAM, QD
     Route: 048
     Dates: start: 20231116
  2. NUPLAZID [Suspect]
     Active Substance: PIMAVANSERIN TARTRATE
     Indication: Hallucination
  3. NUPLAZID [Suspect]
     Active Substance: PIMAVANSERIN TARTRATE
     Indication: Delusion
  4. RYTARY [Concomitant]
     Active Substance: CARBIDOPA\LEVODOPA
  5. DILTIAZEM [Concomitant]
     Active Substance: DILTIAZEM
  6. AMANTADINE [Concomitant]
     Active Substance: AMANTADINE
  7. MEMANTINE [Concomitant]
     Active Substance: MEMANTINE
  8. QUETIAPINE [Concomitant]
     Active Substance: QUETIAPINE
  9. FOLIC ACID [Concomitant]
     Active Substance: FOLIC ACID
  10. DONEPEZIL [Concomitant]
     Active Substance: DONEPEZIL
  11. VITAMINS NOS [Concomitant]
     Active Substance: VITAMINS
  12. IBUPROFEN [Concomitant]
     Active Substance: IBUPROFEN
  13. STOOL SOFTENER (DOCUSATE) [Concomitant]
     Active Substance: DOCUSATE
  14. MELATONIN [Concomitant]
     Active Substance: MELATONIN
  15. TERAZOSIN [Concomitant]
     Active Substance: TERAZOSIN HYDROCHLORIDE

REACTIONS (2)
  - Fall [Not Recovered/Not Resolved]
  - Hallucination [Not Recovered/Not Resolved]

NARRATIVE: CASE EVENT DATE: 20231116
